FAERS Safety Report 18781346 (Version 1)
Quarter: 2021Q1

REPORT INFORMATION
  Report Type: Spontaneous
  Country: US (occurrence: US)
  Receive Date: 20210125
  Receipt Date: 20210125
  Transmission Date: 20210419
  Serious: No
  Sender: FDA-Public Use
  Company Number: None

PATIENT
  Age: 30 Year
  Sex: Female

DRUGS (2)
  1. CASIRIVIMAB/IMDEVIMAB [Suspect]
     Active Substance: CASIRIVIMAB\IMDEVIMAB
     Indication: COVID-19 TREATMENT
     Dates: start: 20210121, end: 20210121
  2. CASIRIVIMAB/IMDEVIMAB [Concomitant]
     Active Substance: CASIRIVIMAB\IMDEVIMAB
     Dates: start: 20210121, end: 20210121

REACTIONS (7)
  - Dyspnoea [None]
  - Cough [None]
  - Feeling cold [None]
  - Throat irritation [None]
  - Dizziness [None]
  - Palpitations [None]
  - Chest pain [None]

NARRATIVE: CASE EVENT DATE: 20210121
